FAERS Safety Report 19394062 (Version 2)
Quarter: 2022Q1

REPORT INFORMATION
  Report Type: Spontaneous
  Country: US (occurrence: US)
  Receive Date: 20210609
  Receipt Date: 20220218
  Transmission Date: 20220424
  Serious: Yes (Other)
  Sender: FDA-Public Use
  Company Number: US-GILEAD-2021-0534818

PATIENT
  Age: 50 Year
  Sex: Male

DRUGS (103)
  1. ATRIPLA [Suspect]
     Active Substance: EFAVIRENZ\EMTRICITABINE\TENOFOVIR DISOPROXIL FUMARATE
     Indication: HIV infection
     Dosage: UNK
     Route: 048
     Dates: start: 2008
  2. ATRIPLA [Suspect]
     Active Substance: EFAVIRENZ\EMTRICITABINE\TENOFOVIR DISOPROXIL FUMARATE
     Dosage: UNK
     Route: 048
     Dates: start: 201107, end: 20121227
  3. ATRIPLA [Suspect]
     Active Substance: EFAVIRENZ\EMTRICITABINE\TENOFOVIR DISOPROXIL FUMARATE
     Dosage: UNK
     Route: 048
     Dates: start: 20130311, end: 20140226
  4. ATRIPLA [Suspect]
     Active Substance: EFAVIRENZ\EMTRICITABINE\TENOFOVIR DISOPROXIL FUMARATE
     Dosage: UNK
     Route: 048
     Dates: start: 20140304, end: 20180318
  5. ATRIPLA [Suspect]
     Active Substance: EFAVIRENZ\EMTRICITABINE\TENOFOVIR DISOPROXIL FUMARATE
     Dosage: UNK
     Route: 048
     Dates: start: 201803, end: 2018
  6. ATRIPLA [Suspect]
     Active Substance: EFAVIRENZ\EMTRICITABINE\TENOFOVIR DISOPROXIL FUMARATE
     Dosage: UNK
     Route: 048
     Dates: start: 20110310, end: 20111001
  7. ATRIPLA [Suspect]
     Active Substance: EFAVIRENZ\EMTRICITABINE\TENOFOVIR DISOPROXIL FUMARATE
     Dosage: UNK
     Route: 048
     Dates: start: 20100719, end: 20110119
  8. TRUVADA [Suspect]
     Active Substance: EMTRICITABINE\TENOFOVIR DISOPROXIL FUMARATE
     Indication: HIV infection
     Dosage: UNK
     Route: 048
     Dates: start: 2008
  9. TRUVADA [Suspect]
     Active Substance: EMTRICITABINE\TENOFOVIR DISOPROXIL FUMARATE
     Dosage: UNK
     Route: 048
     Dates: start: 2004, end: 20100718
  10. TRUVADA [Suspect]
     Active Substance: EMTRICITABINE\TENOFOVIR DISOPROXIL FUMARATE
     Dosage: UNK
     Route: 048
     Dates: start: 20130125, end: 20130310
  11. ODEFSEY [Concomitant]
     Active Substance: EMTRICITABINE\RILPIVIRINE HYDROCHLORIDE\TENOFOVIR ALAFENAMIDE FUMARATE
  12. ISENTRESS [Concomitant]
     Active Substance: RALTEGRAVIR POTASSIUM
  13. ADVAIR HFA [Concomitant]
     Active Substance: FLUTICASONE PROPIONATE\SALMETEROL XINAFOATE
  14. ALBUTEROL [Concomitant]
     Active Substance: ALBUTEROL
  15. AMIODARONE [Concomitant]
     Active Substance: AMIODARONE
  16. AMITRIPTYLINE [Concomitant]
     Active Substance: AMITRIPTYLINE
  17. AZELASTINE [Concomitant]
     Active Substance: AZELASTINE
  18. BACLOFEN [Concomitant]
     Active Substance: BACLOFEN
  19. BENZONATATE [Concomitant]
     Active Substance: BENZONATATE
  20. BETAMETHASONE [Concomitant]
     Active Substance: BETAMETHASONE
  21. CARISOPRODOL [Concomitant]
     Active Substance: CARISOPRODOL
  22. CELEBREX [Concomitant]
     Active Substance: CELECOXIB
  23. CHLORHEXIDINE GLUCONATE [Concomitant]
     Active Substance: CHLORHEXIDINE GLUCONATE
  24. CILOSTAZOL [Concomitant]
     Active Substance: CILOSTAZOL
  25. CLOPIDOGREL [Concomitant]
     Active Substance: CLOPIDOGREL BISULFATE
  26. CIPROFLOXACIN [Concomitant]
     Active Substance: CIPROFLOXACIN
  27. CLARITHROMYCIN [Concomitant]
     Active Substance: CLARITHROMYCIN
  28. CLONAZEPAM [Concomitant]
     Active Substance: CLONAZEPAM
  29. CLONIDINE [Concomitant]
     Active Substance: CLONIDINE
  30. DOCUSATE [Concomitant]
     Active Substance: DOCUSATE
  31. DOXYCYCLINE [Concomitant]
     Active Substance: DOXYCYCLINE
  32. ENDOCET [Concomitant]
     Active Substance: ACETAMINOPHEN\OXYCODONE HYDROCHLORIDE
  33. FAMOTIDINE [Concomitant]
     Active Substance: FAMOTIDINE
  34. FENTANYL [Concomitant]
     Active Substance: FENTANYL
  35. FLUOXETINE [Concomitant]
     Active Substance: FLUOXETINE HYDROCHLORIDE
  36. FLUTICASONE [Concomitant]
     Active Substance: FLUTICASONE
  37. FORTICAL [CALCIUM CARBONATE] [Concomitant]
  38. GABAPENTIN [Concomitant]
     Active Substance: GABAPENTIN
  39. GLIPIZIDE [Concomitant]
     Active Substance: GLIPIZIDE
  40. HIBICLENS [Concomitant]
     Active Substance: CHLORHEXIDINE GLUCONATE
  41. HYDROCODONE [Concomitant]
     Active Substance: HYDROCODONE
  42. HYDROMORPHONE [Concomitant]
     Active Substance: HYDROMORPHONE
  43. IBUPROFEN [Concomitant]
     Active Substance: IBUPROFEN
  44. ISOSORBIDE [Concomitant]
     Active Substance: ISOSORBIDE
  45. KETOCONAZOLE [Concomitant]
     Active Substance: KETOCONAZOLE
  46. KETOROLAC [Concomitant]
     Active Substance: KETOROLAC TROMETHAMINE
  47. LEVAQUIN [Concomitant]
     Active Substance: LEVOFLOXACIN
  48. LEVOFLOXACIN [Concomitant]
     Active Substance: LEVOFLOXACIN
  49. LEXAPRO [Concomitant]
     Active Substance: ESCITALOPRAM OXALATE
  50. LIDOCAINE [Concomitant]
     Active Substance: LIDOCAINE
  51. LORAZEPAM [Concomitant]
     Active Substance: LORAZEPAM
  52. LYRICA [Concomitant]
     Active Substance: PREGABALIN
  53. MELOXICAM [Concomitant]
     Active Substance: MELOXICAM
  54. METFORMIN [Concomitant]
     Active Substance: METFORMIN HYDROCHLORIDE
  55. METHADONE [Concomitant]
     Active Substance: METHADONE HYDROCHLORIDE
  56. METHOCARBAMOL [Concomitant]
     Active Substance: METHOCARBAMOL
  57. METHOTREXATE [Concomitant]
     Active Substance: METHOTREXATE
  58. METHYLPREDNISOLONE [Concomitant]
     Active Substance: METHYLPREDNISOLONE
  59. METOPROLOL [Concomitant]
     Active Substance: METOPROLOL
  60. METRONIDAZOLE [Concomitant]
     Active Substance: METRONIDAZOLE
  61. MIRTAZAPINE [Concomitant]
     Active Substance: MIRTAZAPINE
  62. MOMETASONE [Concomitant]
     Active Substance: MOMETASONE
  63. MONTELUKAST [Concomitant]
     Active Substance: MONTELUKAST SODIUM
  64. MORPHINE SULFATE [Concomitant]
     Active Substance: MORPHINE SULFATE
  65. MUPIROCIN [Concomitant]
     Active Substance: MUPIROCIN
  66. NADOLOL [Concomitant]
     Active Substance: NADOLOL
  67. NIASPAN [Concomitant]
     Active Substance: NIACIN
  68. NITROSTAT [Concomitant]
     Active Substance: NITROGLYCERIN
  69. NYSTATIN [NYSTATIN;ZINC OXIDE] [Concomitant]
  70. OMEPRAZOLE [Concomitant]
     Active Substance: OMEPRAZOLE
  71. ONDANSETRON [Concomitant]
     Active Substance: ONDANSETRON
  72. OXYCODONE [Concomitant]
     Active Substance: OXYCODONE
  73. PANTOPRAZOLE [Concomitant]
     Active Substance: PANTOPRAZOLE
  74. PLAVIX [Concomitant]
     Active Substance: CLOPIDOGREL BISULFATE
  75. POTASSIUM [Concomitant]
     Active Substance: POTASSIUM
  76. PRAVASTATIN [Concomitant]
     Active Substance: PRAVASTATIN
  77. PREDNISONE [Concomitant]
     Active Substance: PREDNISONE
  78. PREGABALIN [Concomitant]
     Active Substance: PREGABALIN
  79. PREVALITE [Concomitant]
     Active Substance: CHOLESTYRAMINE
  80. PROAIR HFA [Concomitant]
     Active Substance: ALBUTEROL SULFATE
  81. PROMETHAZINE [Concomitant]
     Active Substance: PROMETHAZINE HYDROCHLORIDE
  82. PYLERA [Concomitant]
     Active Substance: BISMUTH SUBCITRATE POTASSIUM\METRONIDAZOLE\TETRACYCLINE HYDROCHLORIDE
  83. RANEXA [Concomitant]
     Active Substance: RANOLAZINE
  84. RANITIDINE [Concomitant]
     Active Substance: RANITIDINE
  85. RAPAFLO [Concomitant]
     Active Substance: SILODOSIN
  86. ROSUVASTATIN [Concomitant]
     Active Substance: ROSUVASTATIN
  87. SEROQUEL [Concomitant]
     Active Substance: QUETIAPINE FUMARATE
  88. SILVER SULFADIAZINE [Concomitant]
     Active Substance: SILVER SULFADIAZINE
  89. SIMVASTATIN [Concomitant]
     Active Substance: SIMVASTATIN
  90. SPIRIVA [Concomitant]
     Active Substance: TIOTROPIUM BROMIDE MONOHYDRATE
  91. SULFAMETHOXAZOLE [Concomitant]
     Active Substance: SULFAMETHOXAZOLE
  92. SYMBICORT [Concomitant]
     Active Substance: BUDESONIDE\FORMOTEROL FUMARATE DIHYDRATE
  93. TAMSULOSIN [Concomitant]
     Active Substance: TAMSULOSIN
  94. TEMAZEPAM [Concomitant]
     Active Substance: TEMAZEPAM
  95. TETRACYCLINE [Concomitant]
     Active Substance: TETRACYCLINE
  96. TRAZODONE [Concomitant]
     Active Substance: TRAZODONE HYDROCHLORIDE
  97. TRIAMCINOLONE [Concomitant]
     Active Substance: TRIAMCINOLONE
  98. VALACYCLOVIR [Concomitant]
     Active Substance: VALACYCLOVIR HYDROCHLORIDE
  99. VENLAFAXINE [Concomitant]
     Active Substance: VENLAFAXINE HYDROCHLORIDE
  100. VENTOLIN [Concomitant]
     Active Substance: ALBUTEROL SULFATE
  101. VESICARE [Concomitant]
     Active Substance: SOLIFENACIN SUCCINATE
  102. VITAMIN D NOS [Concomitant]
     Active Substance: VITAMIN D NOS
  103. ZOLPIDEM [Concomitant]
     Active Substance: ZOLPIDEM TARTRATE

REACTIONS (12)
  - Osteomalacia [Not Recovered/Not Resolved]
  - Multiple fractures [Unknown]
  - Osteopenia [Not Recovered/Not Resolved]
  - Bone density decreased [Unknown]
  - Emotional distress [Not Recovered/Not Resolved]
  - Anhedonia [Not Recovered/Not Resolved]
  - Anxiety [Not Recovered/Not Resolved]
  - Pain [Not Recovered/Not Resolved]
  - Rib fracture [Recovered/Resolved]
  - Ankle fracture [Recovered/Resolved]
  - Balance disorder [Not Recovered/Not Resolved]
  - Muscular weakness [Not Recovered/Not Resolved]

NARRATIVE: CASE EVENT DATE: 20130101
